FAERS Safety Report 17038330 (Version 1)
Quarter: 2019Q4

REPORT INFORMATION
  Report Type: Spontaneous
  Country: US (occurrence: US)
  Receive Date: 20191115
  Receipt Date: 20191115
  Transmission Date: 20200122
  Serious: Yes (Hospitalization)
  Sender: FDA-Public Use
  Company Number: US-TORRENT-00007879

PATIENT
  Age: 63 Year
  Sex: Female

DRUGS (1)
  1. LOSARTAN. [Suspect]
     Active Substance: LOSARTAN
     Indication: PRODUCT USED FOR UNKNOWN INDICATION
     Dosage: ONE A DAY TABLET

REACTIONS (6)
  - Paraesthesia [Unknown]
  - Disorientation [Unknown]
  - Blood pressure decreased [Unknown]
  - Dizziness [Unknown]
  - Malaise [Unknown]
  - Mental impairment [Unknown]
